FAERS Safety Report 5492439-0 (Version None)
Quarter: 2007Q4

REPORT INFORMATION
  Report Type: 
  Country: None (occurrence: None)
  Receive Date: 20071015
  Receipt Date: 20070809
  Transmission Date: 20080405
  Serious: No
  Sender: FDA-Public Use
  Company Number: 2007SP002802

PATIENT
  Age: 39 Year
  Sex: Female
  Weight: 58.9676 kg

DRUGS (3)
  1. LUNESTA [Suspect]
     Indication: INSOMNIA
     Dosage: 3 MG; HS; ORAL
     Route: 048
     Dates: start: 20070802
  2. CLONAZEPAM [Concomitant]
  3. TYLENOL [Concomitant]

REACTIONS (3)
  - INSOMNIA [None]
  - NERVOUSNESS [None]
  - TENSION [None]
